FAERS Safety Report 10173923 (Version 1)
Quarter: 2014Q2

REPORT INFORMATION
  Report Type: Spontaneous
  Country: IN (occurrence: IN)
  Receive Date: 20140515
  Receipt Date: 20140515
  Transmission Date: 20141212
  Serious: Yes (Death)
  Sender: FDA-Public Use
  Company Number: IN-INCYTE CORPORATION-2014IN001254

PATIENT
  Age: 62 Year
  Sex: Male

DRUGS (2)
  1. JAKAVI [Suspect]
     Indication: MYELOFIBROSIS
     Dosage: 05 MG, BID
     Route: 048
     Dates: start: 201312
  2. JAKAVI [Suspect]
     Dosage: 10 MG, BID
     Route: 048
     Dates: start: 20131202

REACTIONS (1)
  - Death [Fatal]
